FAERS Safety Report 19597294 (Version 1)
Quarter: 2021Q3

REPORT INFORMATION
  Report Type: Report from Study
  Country: US (occurrence: US)
  Receive Date: 20210722
  Receipt Date: 20210722
  Transmission Date: 20211014
  Serious: Yes (Other)
  Sender: FDA-Public Use
  Company Number: US-TAKEDA-2021TUS043990

PATIENT
  Age: 43 Year
  Sex: Male

DRUGS (8)
  1. TEDUGLUTIDE [Suspect]
     Active Substance: TEDUGLUTIDE
     Indication: SHORT-BOWEL SYNDROME
     Dosage: 4.5 MILLIGRAM (0.05MG/KG), QD
     Route: 065
     Dates: start: 20181205
  2. TEDUGLUTIDE [Suspect]
     Active Substance: TEDUGLUTIDE
     Indication: SHORT-BOWEL SYNDROME
     Dosage: 4.5 MILLIGRAM (0.05MG/KG), QD
     Route: 065
     Dates: start: 20181205
  3. LOVENOX [Concomitant]
     Active Substance: ENOXAPARIN SODIUM
     Indication: SUBCLAVIAN VEIN THROMBOSIS
     Dosage: 1 MILLIGRAM, BID
     Route: 058
     Dates: start: 20200601
  4. BACTRIM [Concomitant]
     Active Substance: SULFAMETHOXAZOLE\TRIMETHOPRIM
     Indication: COMPLICATION ASSOCIATED WITH DEVICE
     Dosage: 9999999 UNK
     Route: 048
     Dates: start: 20200425, end: 20200502
  5. VANCOMYCIN [Concomitant]
     Active Substance: VANCOMYCIN
     Indication: CATHETER REMOVAL
     Dosage: 1750 MILLIGRAM, BID
     Route: 042
     Dates: start: 20200923, end: 20200930
  6. TEDUGLUTIDE [Suspect]
     Active Substance: TEDUGLUTIDE
     Indication: SHORT-BOWEL SYNDROME
     Dosage: 4.5 MILLIGRAM (0.05MG/KG), QD
     Route: 065
     Dates: start: 20181205
  7. TEDUGLUTIDE [Suspect]
     Active Substance: TEDUGLUTIDE
     Indication: SHORT-BOWEL SYNDROME
     Dosage: 4.5 MILLIGRAM (0.05MG/KG), QD
     Route: 065
     Dates: start: 20181205
  8. DOMPERIDONE [Concomitant]
     Active Substance: DOMPERIDONE
     Indication: IMPAIRED GASTRIC EMPTYING
     Dosage: 10 MILLIGRAM, TID
     Route: 048
     Dates: start: 20170321, end: 201908

REACTIONS (3)
  - Subclavian vein thrombosis [Not Recovered/Not Resolved]
  - Device related infection [Recovered/Resolved]
  - Staphylococcal infection [Not Recovered/Not Resolved]

NARRATIVE: CASE EVENT DATE: 20200421
